FAERS Safety Report 18723784 (Version 1)
Quarter: 2021Q1

REPORT INFORMATION
  Report Type: Spontaneous
  Country: US (occurrence: US)
  Receive Date: 20210108
  Receipt Date: 20210108
  Transmission Date: 20210419
  Serious: Yes (Hospitalization)
  Sender: FDA-Public Use
  Company Number: None

PATIENT
  Age: 10 Year
  Sex: Female
  Weight: 33.4 kg

DRUGS (6)
  1. VINCRISTINE SULFATE. [Suspect]
     Active Substance: VINCRISTINE SULFATE
     Dates: end: 20201218
  2. DAUNORUBICIN [Suspect]
     Active Substance: DAUNORUBICIN
     Dates: end: 20201225
  3. METHOTREXATE. [Suspect]
     Active Substance: METHOTREXATE
     Dates: end: 20201211
  4. PREDNISOLONE. [Suspect]
     Active Substance: PREDNISOLONE
     Dates: end: 20201226
  5. ONCASPAR [Suspect]
     Active Substance: PEGASPARGASE
     Dates: end: 20201207
  6. CYTARABINE. [Suspect]
     Active Substance: CYTARABINE
     Dates: end: 20201204

REACTIONS (4)
  - Transaminases increased [None]
  - Pain [None]
  - Liver disorder [None]
  - Cholestasis [None]

NARRATIVE: CASE EVENT DATE: 20201227
